FAERS Safety Report 10453843 (Version 2)
Quarter: 2014Q3

REPORT INFORMATION
  Report Type: Report from Study
  Country: US (occurrence: US)
  Receive Date: 20140915
  Receipt Date: 20140915
  Transmission Date: 20150326
  Serious: Yes (Death, Other)
  Sender: FDA-Public Use
  Company Number: US-ASTELLAS-2014US012238

PATIENT
  Age: 82 Year
  Sex: Female

DRUGS (3)
  1. ERLOTINIB [Suspect]
     Active Substance: ERLOTINIB
     Indication: VULVAL CANCER
     Route: 048
     Dates: start: 20091222
  2. ERLOTINIB [Suspect]
     Active Substance: ERLOTINIB
     Indication: CERVIX CARCINOMA
     Route: 048
     Dates: end: 20100224
  3. ERLOTINIB [Suspect]
     Active Substance: ERLOTINIB
     Indication: LUNG NEOPLASM MALIGNANT
     Route: 048

REACTIONS (4)
  - Pleural effusion [Fatal]
  - Pneumonia [Fatal]
  - Cardiac failure congestive [Fatal]
  - Respiratory failure [Fatal]

NARRATIVE: CASE EVENT DATE: 20100301
